FAERS Safety Report 16760893 (Version 1)
Quarter: 2019Q3

REPORT INFORMATION
  Report Type: Spontaneous
  Country: CH (occurrence: CH)
  Receive Date: 20190830
  Receipt Date: 20190830
  Transmission Date: 20191005
  Serious: Yes (Hospitalization, Other)
  Sender: FDA-Public Use
  Company Number: CH-ASTRAZENECA-2019SF22598

PATIENT
  Age: 18965 Day
  Sex: Male

DRUGS (20)
  1. BACTRIM [Suspect]
     Active Substance: SULFAMETHOXAZOLE\TRIMETHOPRIM
     Dosage: 1.0DF UNKNOWN
     Route: 048
     Dates: start: 20190807, end: 20190811
  2. BACTRIM [Suspect]
     Active Substance: SULFAMETHOXAZOLE\TRIMETHOPRIM
     Dosage: 6.0DF UNKNOWN
     Route: 048
     Dates: start: 20190812, end: 20190813
  3. SERETIDE [Concomitant]
     Active Substance: FLUTICASONE PROPIONATE\SALMETEROL XINAFOATE
  4. DAFALGAN [Concomitant]
     Active Substance: ACETAMINOPHEN
     Dosage: AS NECESSARY
  5. VANCOMYCIN [Concomitant]
     Active Substance: VANCOMYCIN
     Route: 041
     Dates: start: 20190729, end: 20190807
  6. SEVREDOL [Concomitant]
     Active Substance: MORPHINE
     Dosage: AS NECESSARY
  7. CALCIPARINE [Concomitant]
     Active Substance: HEPARIN CALCIUM
  8. TRANXILIUM [Concomitant]
     Active Substance: CLORAZEPATE DIPOTASSIUM
  9. SPIRIVA [Concomitant]
     Active Substance: TIOTROPIUM BROMIDE MONOHYDRATE
  10. NEXIUM MUPS [Suspect]
     Active Substance: ESOMEPRAZOLE
     Dosage: 40.0MG UNKNOWN
     Route: 048
  11. FLUCLOXACILLIN [Concomitant]
     Active Substance: FLUCLOXACILLIN
     Route: 041
     Dates: start: 20190719, end: 20190729
  12. MOVICOL [Concomitant]
     Active Substance: POLYETHYLENE GLYCOL 3350\POTASSIUM CHLORIDE\SODIUM BICARBONATE\SODIUM CHLORIDE
  13. TRITTICO [Concomitant]
     Active Substance: TRAZODONE HYDROCHLORIDE
  14. ASPIRIN CARDIO [Suspect]
     Active Substance: ASPIRIN
     Dosage: 100.0MG UNKNOWN
     Route: 048
  15. ONDANSETRON [Concomitant]
     Active Substance: ONDANSETRON
     Dosage: AS NECESSARY
  16. BACTRIM [Suspect]
     Active Substance: SULFAMETHOXAZOLE\TRIMETHOPRIM
     Dosage: 1.0DF UNKNOWN
     Route: 048
     Dates: start: 20190814
  17. CEFEPIME [Concomitant]
     Active Substance: CEFEPIME HYDROCHLORIDE
     Route: 041
     Dates: start: 20190730, end: 20190807
  18. RITALINE [Concomitant]
     Active Substance: METHYLPHENIDATE HYDROCHLORIDE
  19. PAROXETINE. [Concomitant]
     Active Substance: PAROXETINE
  20. CO-AMOXICILLIN [Concomitant]
     Active Substance: AMOXICILLIN\CLAVULANATE POTASSIUM
     Route: 041
     Dates: start: 20190718, end: 20190718

REACTIONS (6)
  - White blood cell count decreased [Recovered/Resolved]
  - Renal failure [Recovering/Resolving]
  - Nausea [Recovered/Resolved]
  - Vomiting [Recovered/Resolved]
  - Accidental overdose [Recovered/Resolved]
  - Platelet count decreased [Recovered/Resolved]

NARRATIVE: CASE EVENT DATE: 20190812
